FAERS Safety Report 9972247 (Version 2)
Quarter: 2014Q2

REPORT INFORMATION
  Report Type: Spontaneous
  Country: US (occurrence: US)
  Receive Date: 20140306
  Receipt Date: 20140509
  Transmission Date: 20141212
  Serious: Yes (Other)
  Sender: FDA-Public Use
  Company Number: US-BAYER-2014-033970

PATIENT
  Age: 39 Year
  Sex: Female
  Weight: 91.57 kg

DRUGS (6)
  1. YAZ [Suspect]
  2. YASMIN [Suspect]
  3. OCELLA [Suspect]
  4. SYNTHROID [Concomitant]
  5. ALLEGRA [Concomitant]
  6. BENICAR [Concomitant]

REACTIONS (2)
  - Deep vein thrombosis [None]
  - Deep vein thrombosis [None]
